FAERS Safety Report 10178256 (Version 1)
Quarter: 2014Q2

REPORT INFORMATION
  Report Type: Report from Study
  Country: US (occurrence: US)
  Receive Date: 20140519
  Receipt Date: 20140519
  Transmission Date: 20141212
  Serious: Yes (Other)
  Sender: FDA-Public Use
  Company Number: PHEH2014US009746

PATIENT
  Sex: Male

DRUGS (13)
  1. TASIGNA [Suspect]
     Indication: CHRONIC MYELOID LEUKAEMIA
     Dosage: 300 MG, BID
     Route: 048
     Dates: start: 2011, end: 20140414
  2. HUMALOG [Concomitant]
  3. LANTUS [Concomitant]
  4. ZOFRAN [Concomitant]
  5. PHENERGAN//PROMETHAZINE HYDROCHLORIDE [Concomitant]
  6. ASPIRIN [Concomitant]
  7. MOBIC [Concomitant]
  8. ZOCOR [Concomitant]
  9. LANSOPRAZOLE [Concomitant]
  10. CITALOPRAM [Concomitant]
  11. AMLODIPINE BESYLATE [Concomitant]
  12. TENORMIN [Concomitant]
  13. TRILIPIX [Concomitant]

REACTIONS (2)
  - Chronic myeloid leukaemia [Unknown]
  - Malignant neoplasm progression [Unknown]
